FAERS Safety Report 24659941 (Version 2)
Quarter: 2025Q1

REPORT INFORMATION
  Report Type: Spontaneous
  Country: US (occurrence: US)
  Receive Date: 20241125
  Receipt Date: 20250117
  Transmission Date: 20250409
  Serious: Yes (Death, Hospitalization, Other)
  Sender: TAKEDA
  Company Number: US-TAKEDA-2024TUS117714

PATIENT
  Age: 78 Year
  Sex: Female
  Weight: 50 kg

DRUGS (4)
  1. LIVTENCITY [Suspect]
     Active Substance: MARIBAVIR
     Indication: Cytomegalovirus infection
     Dosage: 200 MILLIGRAM, BID
     Dates: start: 20240822
  2. LIVTENCITY [Suspect]
     Active Substance: MARIBAVIR
     Indication: Cytomegalovirus viraemia
     Dosage: UNK, BID
     Dates: end: 20241106
  3. CYCLOSPORINE [Concomitant]
     Active Substance: CYCLOSPORINE
     Indication: Immunosuppression
     Dosage: 50 MILLIGRAM, BID
     Dates: start: 20230124, end: 20241101
  4. PREDNISONE [Concomitant]
     Active Substance: PREDNISONE
     Indication: Immunosuppression
     Dosage: 7.5 MILLIGRAM, QD
     Dates: start: 20240920, end: 20241106

REACTIONS (8)
  - Death [Fatal]
  - Subarachnoid haemorrhage [Unknown]
  - Pneumonia aspiration [Unknown]
  - Mental status changes [Unknown]
  - Central nervous system lesion [Unknown]
  - Human polyomavirus infection [Unknown]
  - Respiratory failure [Unknown]
  - Acute kidney injury [Unknown]

NARRATIVE: CASE EVENT DATE: 20241107
